FAERS Safety Report 13285363 (Version 1)
Quarter: 2017Q1

REPORT INFORMATION
  Report Type: Spontaneous
  Country: RU (occurrence: RU)
  Receive Date: 20170301
  Receipt Date: 20170301
  Transmission Date: 20170428
  Serious: Yes (Life-Threatening)
  Sender: FDA-Public Use
  Company Number: PHHY2017RU026269

PATIENT
  Age: 43 Year
  Sex: Male

DRUGS (1)
  1. LENDACIN [Suspect]
     Active Substance: CEFTRIAXONE SODIUM
     Indication: ANTIBIOTIC PROPHYLAXIS
     Dosage: 1 G
     Route: 042

REACTIONS (2)
  - Cardiac arrest [Unknown]
  - Anaphylactic shock [Unknown]
